FAERS Safety Report 13002506 (Version 2)
Quarter: 2017Q2

REPORT INFORMATION
  Report Type: Spontaneous
  Country: JP (occurrence: JP)
  Receive Date: 20161206
  Receipt Date: 20170407
  Transmission Date: 20170830
  Serious: Yes (Other)
  Sender: FDA-Public Use
  Company Number: JP-UCBSA-2016045531

PATIENT
  Age: 28 Year
  Sex: Female

DRUGS (6)
  1. DEPAKENE [Concomitant]
     Active Substance: VALPROIC ACID
     Indication: EPILEPSY
     Dosage: 300 MG, 3X/DAY (TID)
     Route: 048
     Dates: end: 20170324
  2. E KEPPRA [Concomitant]
     Active Substance: LEVETIRACETAM
     Indication: EPILEPSY
     Dosage: 500 MG, 2X/DAY (BID)
     Route: 048
     Dates: start: 20150918
  3. E KEPPRA [Concomitant]
     Active Substance: LEVETIRACETAM
     Dosage: 250 MG, ONCE DAILY (QD)
     Route: 048
     Dates: start: 20151004
  4. TEGRETOL [Concomitant]
     Active Substance: CARBAMAZEPINE
     Indication: EPILEPSY
     Dosage: 400 MG, 2X/DAY (BID)
     Route: 048
  5. VIMPAT [Suspect]
     Active Substance: LACOSAMIDE
     Dosage: 100 MG, 2X/DAY (BID)
     Route: 048
     Dates: start: 20161025
  6. VIMPAT [Suspect]
     Active Substance: LACOSAMIDE
     Indication: EPILEPSY
     Dosage: 50 MG, ONCE DAILY (QD)
     Route: 048
     Dates: start: 20161004, end: 201610

REACTIONS (2)
  - Anaemia [Recovering/Resolving]
  - Epilepsy [Recovered/Resolved]

NARRATIVE: CASE EVENT DATE: 201610
